FAERS Safety Report 12177685 (Version 2)
Quarter: 2016Q2

REPORT INFORMATION
  Report Type: Report from Study
  Country: US (occurrence: US)
  Receive Date: 20160314
  Receipt Date: 20160429
  Transmission Date: 20160815
  Serious: Yes (Hospitalization)
  Sender: FDA-Public Use
  Company Number: US-ABBVIE-16K-163-1576275-00

PATIENT
  Sex: Male

DRUGS (1)
  1. HUMIRA [Suspect]
     Active Substance: ADALIMUMAB
     Indication: PSORIASIS
     Route: 058
     Dates: start: 20160128

REACTIONS (14)
  - Dizziness [Unknown]
  - Pruritus [Unknown]
  - Sinusitis [Unknown]
  - Pain of skin [Unknown]
  - Localised infection [Unknown]
  - Emotional disorder [Unknown]
  - Peripheral swelling [Unknown]
  - Skin irritation [Unknown]
  - Skin exfoliation [Unknown]
  - Fungal skin infection [Unknown]
  - Injection site pain [Unknown]
  - Frustration tolerance decreased [Unknown]
  - Hypoaesthesia [Unknown]
  - Anger [Unknown]

NARRATIVE: CASE EVENT DATE: 2016
